FAERS Safety Report 23863970 (Version 2)
Quarter: 2024Q2

REPORT INFORMATION
  Report Type: Other
  Country: US (occurrence: US)
  Receive Date: 20240516
  Receipt Date: 20240604
  Transmission Date: 20240716
  Serious: Yes (Hospitalization, Other)
  Sender: FDA-Public Use
  Company Number: US-AVEVA-000647

PATIENT
  Age: 68 Year
  Sex: Male
  Weight: 70 kg

DRUGS (7)
  1. CLONIDINE [Suspect]
     Active Substance: CLONIDINE
     Indication: Alcohol withdrawal syndrome
     Dosage: 2 DOSAGE FORMS OF 0.2 MILLIGRAM/24 HOUR
     Route: 062
  2. GABAPENTIN [Suspect]
     Active Substance: GABAPENTIN
     Indication: Alcohol withdrawal syndrome
     Dosage: 1200 MILLIGRAM LOADING DOSE
     Route: 065
  3. THIAMINE [Suspect]
     Active Substance: THIAMINE
     Indication: Alcohol withdrawal syndrome
     Dosage: UNK
     Route: 065
  4. LISINOPRIL [Concomitant]
     Active Substance: LISINOPRIL
     Indication: Hypertension
     Dosage: 20 MILLIGRAM QD
     Route: 065
  5. GABAPENTIN [Suspect]
     Active Substance: GABAPENTIN
     Indication: Alcohol withdrawal syndrome
     Dosage: 800 MILLIGRAM TID
     Route: 065
  6. CLONIDINE [Suspect]
     Active Substance: CLONIDINE
     Indication: Alcohol withdrawal syndrome
     Dosage: 0.1 MILLIGRAM TID
     Route: 048
  7. LISINOPRIL [Concomitant]
     Active Substance: LISINOPRIL
     Indication: Hypertension
     Dosage: UNK (RESTARTED DOSE)
     Route: 065

REACTIONS (1)
  - Posterior reversible encephalopathy syndrome [Recovered/Resolved]
